FAERS Safety Report 23291483 (Version 1)
Quarter: 2023Q4

REPORT INFORMATION
  Report Type: Spontaneous
  Country: US (occurrence: US)
  Receive Date: 20231213
  Receipt Date: 20231213
  Transmission Date: 20240110
  Serious: No
  Sender: FDA-Public Use
  Company Number: US-ALVOGEN-2023089451

PATIENT
  Age: 66 Year
  Sex: Male
  Weight: 158.75 kg

DRUGS (8)
  1. FENTANYL [Suspect]
     Active Substance: FENTANYL\FENTANYL CITRATE
     Indication: Back pain
     Dosage: EXPIRATION DATE: SEP-2021?400 MCG/48 HOURS, FOUR 100 MCG PATCHES.
     Dates: start: 20200609
  2. FENTANYL [Suspect]
     Active Substance: FENTANYL\FENTANYL CITRATE
     Indication: Back pain
     Dosage: EXPIRATION DATE: JUN-2025?STRENGTH: 300 MCG/48 HOURS (THREE 100 MCG PATCHES).
     Dates: start: 20230304, end: 202303
  3. METOPROLOL [Concomitant]
     Active Substance: METOPROLOL
     Indication: Blood pressure abnormal
  4. OLMESARTAN [Concomitant]
     Active Substance: OLMESARTAN
     Indication: Blood pressure abnormal
     Dosage: AS NEEDED.
  5. TESTOSTERONE [Concomitant]
     Active Substance: TESTOSTERONE
     Indication: Blood testosterone decreased
     Dosage: STRENGTH: 200 MCG 1 ML INJECTION EVERY WEEK.
  6. PREDNISOLONE [Concomitant]
     Active Substance: PREDNISOLONE
     Indication: Neck pain
  7. TAMSULOSIN [Concomitant]
     Active Substance: TAMSULOSIN
     Indication: Product used for unknown indication
  8. VITAMIN D3 [Concomitant]
     Active Substance: CHOLECALCIFEROL
     Indication: Product used for unknown indication

REACTIONS (2)
  - Renal pain [Recovered/Resolved]
  - Back pain [Recovered/Resolved]

NARRATIVE: CASE EVENT DATE: 20200609
